FAERS Safety Report 11055865 (Version 1)
Quarter: 2015Q2

REPORT INFORMATION
  Report Type: Spontaneous
  Country: US (occurrence: None)
  Receive Date: 20150421
  Receipt Date: 20150421
  Transmission Date: 20150821
  Serious: Yes (Disabling)
  Sender: FDA-Public Use
  Company Number: None

PATIENT
  Age: 51 Year
  Sex: Female

DRUGS (1)
  1. TAXOTERE [Suspect]
     Active Substance: DOCETAXEL
     Indication: BREAST CANCER
     Dosage: SEE CHART TWICE INTRAVENOUS
     Route: 042
     Dates: start: 20130510, end: 20130531

REACTIONS (1)
  - Alopecia [None]

NARRATIVE: CASE EVENT DATE: 20130510
